FAERS Safety Report 20759923 (Version 2)
Quarter: 2022Q2

REPORT INFORMATION
  Report Type: Spontaneous
  Country: US (occurrence: US)
  Receive Date: 20220427
  Receipt Date: 20220502
  Transmission Date: 20220721
  Serious: Yes (Other)
  Sender: FDA-Public Use
  Company Number: US-BRISTOL-MYERS SQUIBB COMPANY-2022-029157

PATIENT

DRUGS (4)
  1. SPRYCEL [Suspect]
     Active Substance: DASATINIB
     Indication: Product used for unknown indication
  2. SPRYCEL [Suspect]
     Active Substance: DASATINIB
  3. SPRYCEL [Suspect]
     Active Substance: DASATINIB
  4. SPRYCEL [Suspect]
     Active Substance: DASATINIB

REACTIONS (1)
  - Drug ineffective [Unknown]
